FAERS Safety Report 6842810-7 (Version None)
Quarter: 2010Q3

REPORT INFORMATION
  Report Type: 
  Country: None (occurrence: None)
  Receive Date: 20100714
  Receipt Date: 20070803
  Transmission Date: 20110219
  Serious: No
  Sender: FDA-Public Use
  Company Number: US-PFIZER INC-2007066411

PATIENT
  Sex: Female
  Weight: 58.2 kg

DRUGS (4)
  1. CHANTIX [Suspect]
     Indication: SMOKING CESSATION THERAPY
     Dates: start: 20070723
  2. SYNTHROID [Concomitant]
  3. LORAZEPAM [Concomitant]
     Indication: ANXIETY
  4. AMBIEN [Concomitant]
     Indication: INSOMNIA

REACTIONS (3)
  - INSOMNIA [None]
  - IRRITABILITY [None]
  - NIGHTMARE [None]
